FAERS Safety Report 19239230 (Version 5)
Quarter: 2021Q3

REPORT INFORMATION
  Report Type: Report from Study
  Country: CN (occurrence: CN)
  Receive Date: 20210510
  Receipt Date: 20210830
  Transmission Date: 20211014
  Serious: Yes (Hospitalization)
  Sender: FDA-Public Use
  Company Number: CN-ROCHE-2823343

PATIENT
  Age: 76 Year
  Sex: Male
  Weight: 68.5 kg

DRUGS (36)
  1. GLOFITAMAB. [Suspect]
     Active Substance: GLOFITAMAB
     Indication: DIFFUSE LARGE B-CELL LYMPHOMA REFRACTORY
     Dosage: DOSE LAST STUDY DRUG ADMIN PRIOR AE/SAE IS 30 MG?MOST RECENT DOSE OF STUDY DRUG PRIOR TO AE/SAE 23/A
     Route: 042
     Dates: start: 20210408
  2. OMEPRAZOLE. [Concomitant]
     Active Substance: OMEPRAZOLE
     Route: 042
     Dates: start: 20210423, end: 20210423
  3. SODIUM BICARBONATE. [Concomitant]
     Active Substance: SODIUM BICARBONATE
     Route: 042
     Dates: start: 20210408, end: 20210408
  4. ACETAMINOPHEN. [Concomitant]
     Active Substance: ACETAMINOPHEN
     Route: 048
     Dates: start: 20210416, end: 20210416
  5. SODIUM LACTATE RINGER^S [Concomitant]
     Route: 042
     Dates: start: 20210423, end: 20210423
  6. INDOMETACIN [Concomitant]
     Active Substance: INDOMETHACIN
     Route: 054
     Dates: start: 20210416, end: 20210416
  7. METHYLPREDNISOLONE. [Concomitant]
     Active Substance: METHYLPREDNISOLONE
     Route: 042
     Dates: start: 20210401, end: 20210401
  8. BARBITAL [Concomitant]
     Active Substance: BARBITAL
     Indication: PREMEDICATION
     Route: 048
     Dates: start: 20210415, end: 20210415
  9. DIPHENHYDRAMINE HYDROCHLORIDE. [Concomitant]
     Active Substance: DIPHENHYDRAMINE HYDROCHLORIDE
     Route: 030
     Dates: start: 20210408, end: 20210408
  10. OBINUTUZUMAB. [Suspect]
     Active Substance: OBINUTUZUMAB
     Indication: DIFFUSE LARGE B-CELL LYMPHOMA REFRACTORY
     Dosage: DOSE LAST STUDY DRUG ADMIN PRIOR AE/SAE IS 1000 MG?MOST RECENT DOSE OF STUDY DRUG PRIOR TO AE/SAE 01
     Route: 042
     Dates: start: 20210401
  11. OMEPRAZOLE. [Concomitant]
     Active Substance: OMEPRAZOLE
     Route: 042
     Dates: start: 20210408, end: 20210408
  12. SODIUM BICARBONATE. [Concomitant]
     Active Substance: SODIUM BICARBONATE
     Route: 042
     Dates: start: 20210330, end: 20210401
  13. ASPIRIN. [Concomitant]
     Active Substance: ASPIRIN
     Route: 048
     Dates: start: 201501
  14. OMEPRAZOLE. [Concomitant]
     Active Substance: OMEPRAZOLE
     Indication: PROPHYLAXIS
     Route: 042
     Dates: start: 20210330, end: 20210401
  15. OMEPRAZOLE. [Concomitant]
     Active Substance: OMEPRAZOLE
     Route: 042
     Dates: start: 20210415, end: 20210415
  16. SODIUM LACTATE RINGER^S [Concomitant]
     Route: 042
     Dates: start: 20210408, end: 20210408
  17. DIPHENHYDRAMINE HYDROCHLORIDE. [Concomitant]
     Active Substance: DIPHENHYDRAMINE HYDROCHLORIDE
     Route: 030
     Dates: start: 20210401, end: 20210401
  18. SODIUM LACTATE RINGER^S [Concomitant]
     Indication: PROPHYLAXIS
     Route: 042
     Dates: start: 20210330, end: 20210401
  19. SODIUM LACTATE RINGER^S [Concomitant]
     Route: 042
     Dates: start: 20210330, end: 20210408
  20. METHYLPREDNISOLONE. [Concomitant]
     Active Substance: METHYLPREDNISOLONE
     Indication: PREMEDICATION
     Route: 042
     Dates: start: 20210415, end: 20210415
  21. COMPOUND PARACETAMOL [Concomitant]
     Indication: PREMEDICATION
     Route: 048
     Dates: start: 20210423, end: 20210423
  22. DIPHENHYDRAMINE HYDROCHLORIDE. [Concomitant]
     Active Substance: DIPHENHYDRAMINE HYDROCHLORIDE
     Indication: PREMEDICATION
     Route: 030
     Dates: start: 20210423, end: 20210423
  23. DIPHENHYDRAMINE HYDROCHLORIDE. [Concomitant]
     Active Substance: DIPHENHYDRAMINE HYDROCHLORIDE
     Route: 030
     Dates: start: 20210415, end: 20210415
  24. DALTEPARIN SODIUM [Concomitant]
     Active Substance: DALTEPARIN SODIUM
     Dosage: 5000 IU
     Route: 058
     Dates: start: 20210501
  25. SODIUM LACTATE RINGER^S [Concomitant]
     Route: 042
     Dates: start: 20210415, end: 20210415
  26. SODIUM BICARBONATE. [Concomitant]
     Active Substance: SODIUM BICARBONATE
     Route: 042
     Dates: start: 20210401, end: 20210401
  27. SODIUM BICARBONATE. [Concomitant]
     Active Substance: SODIUM BICARBONATE
     Route: 042
     Dates: start: 20210415, end: 20210415
  28. METHYLPREDNISOLONE. [Concomitant]
     Active Substance: METHYLPREDNISOLONE
     Route: 042
     Dates: start: 20210408, end: 20210408
  29. COMPOUND PARACETAMOL [Concomitant]
     Route: 048
     Dates: start: 20210401, end: 20210401
  30. DIPHENHYDRAMINE. [Concomitant]
     Active Substance: DIPHENHYDRAMINE
     Indication: PREMEDICATION
     Route: 030
     Dates: start: 20210408, end: 20210408
  31. OMEPRAZOLE. [Concomitant]
     Active Substance: OMEPRAZOLE
     Route: 042
     Dates: start: 20210401, end: 20210401
  32. SODIUM LACTATE RINGER^S [Concomitant]
     Route: 042
     Dates: start: 20210416, end: 20210416
  33. SODIUM LACTATE RINGER^S [Concomitant]
     Route: 042
     Dates: start: 20210401, end: 20210401
  34. NITROGLYCERIN. [Concomitant]
     Active Substance: NITROGLYCERIN
  35. METHYLPREDNISOLONE. [Concomitant]
     Active Substance: METHYLPREDNISOLONE
     Route: 042
     Dates: start: 20210423, end: 20210423
  36. ACETAMINOPHEN. [Concomitant]
     Active Substance: ACETAMINOPHEN
     Route: 048
     Dates: start: 20210408, end: 20210408

REACTIONS (1)
  - Acute myocardial infarction [Recovered/Resolved with Sequelae]

NARRATIVE: CASE EVENT DATE: 20210430
